FAERS Safety Report 10011686 (Version 1)
Quarter: 2014Q1

REPORT INFORMATION
  Report Type: Spontaneous
  Country: US (occurrence: None)
  Receive Date: 20140313
  Receipt Date: 20140313
  Transmission Date: 20141002
  Serious: Yes (Other)
  Sender: FDA-Public Use
  Company Number: None

PATIENT
  Age: 46 Year
  Sex: Male
  Weight: 108.86 kg

DRUGS (7)
  1. LOVENOX [Suspect]
     Indication: MYOCARDIAL INFARCTION
     Route: 058
  2. LOTREL [Concomitant]
  3. ZINC [Concomitant]
  4. WELLBUTRIN [Concomitant]
  5. MULTIVITAMIN [Concomitant]
  6. CLARITIN [Concomitant]
  7. ASPIRIN [Concomitant]

REACTIONS (3)
  - Ulcer [None]
  - Scar [None]
  - Purulence [None]
